FAERS Safety Report 4457137-0 (Version None)
Quarter: 2004Q3

REPORT INFORMATION
  Report Type: 
  Country: None (occurrence: None)
  Receive Date: 20040825
  Receipt Date: 20040520
  Transmission Date: 20050211
  Serious: No
  Sender: FDA-Public Use
  Company Number: 206704

PATIENT
  Age: 42 Year
  Sex: Male
  Weight: 83.9 kg

DRUGS (1)
  1. RAPTIVA [Suspect]
     Indication: PSORIASIS
     Dosage: 0.8 ML  1/WEEK SUBCUTANEOUS
     Route: 058
     Dates: start: 20040324

REACTIONS (1)
  - HAIR COLOUR CHANGES [None]
